FAERS Safety Report 6723230-2 (Version None)
Quarter: 2010Q2

REPORT INFORMATION
  Report Type: 
  Country: None (occurrence: None)
  Receive Date: 20100513
  Receipt Date: 20100505
  Transmission Date: 20101027
  Serious: Yes (Other)
  Sender: FDA-Public Use
  Company Number: CL-JNJFOC-20090701917

PATIENT
  Sex: Female
  Weight: 67 kg

DRUGS (30)
  1. GOLIMUMAB [Suspect]
     Indication: RHEUMATOID ARTHRITIS
     Route: 058
  2. GOLIMUMAB [Suspect]
     Route: 058
  3. GOLIMUMAB [Suspect]
     Route: 058
  4. GOLIMUMAB [Suspect]
     Route: 058
  5. GOLIMUMAB [Suspect]
     Route: 058
  6. GOLIMUMAB [Suspect]
     Route: 058
  7. GOLIMUMAB [Suspect]
     Route: 058
  8. GOLIMUMAB [Suspect]
     Route: 058
  9. GOLIMUMAB [Suspect]
     Route: 058
  10. GOLIMUMAB [Suspect]
     Route: 058
  11. GOLIMUMAB [Suspect]
     Route: 058
  12. GOLIMUMAB [Suspect]
     Route: 058
  13. GOLIMUMAB [Suspect]
     Route: 058
  14. GOLIMUMAB [Suspect]
     Route: 058
  15. GOLIMUMAB [Suspect]
     Route: 058
  16. GOLIMUMAB [Suspect]
     Route: 058
  17. METHOTREXATE [Suspect]
     Indication: RHEUMATOID ARTHRITIS
     Route: 048
  18. PLACEBO [Suspect]
     Indication: RHEUMATOID ARTHRITIS
     Route: 058
  19. METHOTREXATE [Concomitant]
     Route: 048
  20. DOLOSPAM [Concomitant]
     Route: 048
  21. ASPIRIN [Concomitant]
     Route: 048
  22. SERTRALINE [Concomitant]
     Route: 048
  23. PREDNISONE [Concomitant]
     Route: 048
  24. ENALAPRIL MALEATE [Concomitant]
     Route: 048
  25. AMITRIPTLINE HYDROCHLORIDE TAB [Concomitant]
     Route: 048
  26. METFORMIN HYDROCHLORIDE [Concomitant]
     Route: 048
  27. ALPRAZOLAM [Concomitant]
     Route: 048
  28. PARACETAMOL [Concomitant]
     Route: 048
  29. CYCLOBENZAPRINE [Concomitant]
     Route: 048
  30. FOLIC ACID [Concomitant]

REACTIONS (1)
  - H1N1 INFLUENZA [None]
